FAERS Safety Report 5126081-8 (Version None)
Quarter: 2006Q4

REPORT INFORMATION
  Report Type: 
  Country: None (occurrence: None)
  Receive Date: 20061012
  Receipt Date: 20061002
  Transmission Date: 20070319
  Serious: Yes (Other)
  Sender: FDA-Public Use
  Company Number: GB-JNJFOC-20060606663

PATIENT
  Sex: Female

DRUGS (4)
  1. REMINYL [Suspect]
     Indication: DEMENTIA ALZHEIMER'S TYPE
  2. EPILEM (EPIRUBICIN HYDROCHLORIDE [Concomitant]
  3. LEVOTHYROXINE SODIUM [Concomitant]
  4. ASPRO (ASCORBIC ACID/ACETYLSALICYLIC ACID) [Concomitant]

REACTIONS (7)
  - CONVULSION [None]
  - DIZZINESS [None]
  - EYE DISORDER [None]
  - EYE ROLLING [None]
  - FALL [None]
  - POSTURE ABNORMAL [None]
  - WEIGHT INCREASED [None]
